FAERS Safety Report 7378997-X (Version None)
Quarter: 2011Q1

REPORT INFORMATION
  Report Type: 
  Country: None (occurrence: None)
  Receive Date: 20110324
  Receipt Date: 20110324
  Transmission Date: 20110831
  Serious: Yes (Life-Threatening)
  Sender: FDA-Public Use
  Company Number: None

PATIENT
  Age: 74 Year
  Sex: Female

DRUGS (10)
  1. FELODIPINE [Suspect]
  2. WARFARIN SODIUM [Suspect]
     Indication: ATRIAL FIBRILLATION
     Dosage: 5MG DAILY X 5DAYS PO 7.5MG DAILY X 2DAYS PO
     Route: 048
     Dates: start: 20030101, end: 20100811
  3. FUROSEMIDE [Concomitant]
  4. METOPROL [Concomitant]
  5. ACETAMINOPHEN [Concomitant]
  6. DIGOXIN [Concomitant]
  7. VERAPAMIL [Concomitant]
  8. M.V.I. [Concomitant]
  9. ASPIRIN [Suspect]
  10. LIPITOR [Concomitant]

REACTIONS (1)
  - SKIN NECROSIS [None]
